FAERS Safety Report 21294644 (Version 2)
Quarter: 2022Q3

REPORT INFORMATION
  Report Type: Report from Study
  Country: DE (occurrence: DE)
  Receive Date: 20220905
  Receipt Date: 20220912
  Transmission Date: 20221027
  Serious: Yes (Death, Hospitalization, Other)
  Sender: FDA-Public Use
  Company Number: DE-BRISTOL-MYERS SQUIBB COMPANY-BMS-2022-030560

PATIENT
  Age: 71 Year
  Sex: Male

DRUGS (18)
  1. OPDIVO [Suspect]
     Active Substance: NIVOLUMAB
     Indication: Renal cell carcinoma
     Dosage: 3 MILLIGRAM/KILOGRAM, Q3WK
     Route: 042
     Dates: start: 20211124, end: 20220216
  2. OPDIVO [Suspect]
     Active Substance: NIVOLUMAB
     Route: 042
     Dates: start: 20211124, end: 20220216
  3. YERVOY [Suspect]
     Active Substance: IPILIMUMAB
     Indication: Renal cell carcinoma
     Dosage: 1 MILLIGRAM/KILOGRAM, Q3WK
     Route: 042
     Dates: start: 20211124, end: 20220105
  4. ASPIRIN [Concomitant]
     Active Substance: ASPIRIN
     Indication: Cardiovascular disorder
     Dosage: 100 MILLIGRAM
     Route: 065
  5. PANGROL [PANCREATIN] [Concomitant]
     Indication: Prophylaxis
     Dosage: 80000 UNIT NOT GIVEN
     Route: 065
  6. CARVEDILOL [Concomitant]
     Active Substance: CARVEDILOL
     Indication: Cerebrovascular disorder
     Dosage: 25 MILLIGRAM
     Route: 065
  7. CARVEDILOL [Concomitant]
     Active Substance: CARVEDILOL
     Indication: Cardiovascular disorder
  8. CANDESARTAN [Concomitant]
     Active Substance: CANDESARTAN
     Indication: Cerebrovascular disorder
     Dosage: 32 MILLIGRAM
     Route: 065
  9. CANDESARTAN [Concomitant]
     Active Substance: CANDESARTAN
     Indication: Cardiovascular disorder
  10. MINOXIDIL [Concomitant]
     Active Substance: MINOXIDIL
     Indication: Cerebrovascular disorder
     Dosage: 10 MILLIGRAM
     Route: 065
  11. MINOXIDIL [Concomitant]
     Active Substance: MINOXIDIL
     Indication: Cardiovascular disorder
  12. SEVELAMER [Concomitant]
     Active Substance: SEVELAMER
     Indication: Gastric disorder
     Dosage: 2400 MILLIGRAM
     Route: 065
  13. SEVELAMER [Concomitant]
     Active Substance: SEVELAMER
     Indication: Gastrointestinal disorder
  14. SEVELAMER [Concomitant]
     Active Substance: SEVELAMER
     Indication: Renal disorder
  15. CALCITRIOL [Concomitant]
     Active Substance: CALCITRIOL
     Indication: Prophylaxis
     Dosage: 0.25 MICROGRAM
     Route: 065
  16. CINACALCET HYDROCHLORIDE [Concomitant]
     Active Substance: CINACALCET HYDROCHLORIDE
     Indication: Metabolic disorder
     Dosage: 30 MILLIGRAM
     Route: 065
  17. BENSERAZIDE\LEVODOPA [Concomitant]
     Active Substance: BENSERAZIDE\LEVODOPA
     Indication: Product used for unknown indication
     Dosage: UNK
     Route: 065
  18. PREGABALIN [Concomitant]
     Active Substance: PREGABALIN
     Indication: Product used for unknown indication
     Dosage: 25 MILLIGRAM
     Route: 065

REACTIONS (5)
  - Anaemia [Unknown]
  - Pyelonephritis [Fatal]
  - General physical health deterioration [Recovered/Resolved]
  - Lymphocytic hypophysitis [Unknown]
  - Hypophysitis [Unknown]

NARRATIVE: CASE EVENT DATE: 20220201
